FAERS Safety Report 5209961-4 (Version None)
Quarter: 2006Q4

REPORT INFORMATION
  Report Type: 
  Country: None (occurrence: None)
  Receive Date: 20061128
  Receipt Date: 20060914
  Transmission Date: 20070319
  Serious: Yes (Other)
  Sender: FDA-Public Use
  Company Number: 2006100158

PATIENT
  Age: 77 Year
  Sex: Female
  Weight: 61.2356 kg

DRUGS (8)
  1. TIKOSYN [Suspect]
     Indication: ATRIAL FIBRILLATION
     Dosage: 250 MCG (125 MCG, 2 IN 1 D)
     Dates: start: 20060807
  2. POTASSIUM (POTASSIUM) [Concomitant]
  3. DIOVAN [Concomitant]
  4. LASIX [Concomitant]
  5. IMDUR [Concomitant]
  6. ALLOPURINOL [Concomitant]
  7. COUMADIN [Concomitant]
  8. DEMADEX [Concomitant]

REACTIONS (2)
  - ATRIAL FIBRILLATION [None]
  - CHEST PAIN [None]
